FAERS Safety Report 23984232 (Version 4)
Quarter: 2024Q4

REPORT INFORMATION
  Report Type: Report from Study
  Country: CA (occurrence: CA)
  Receive Date: 20240618
  Receipt Date: 20241008
  Transmission Date: 20250115
  Serious: Yes (Hospitalization)
  Sender: JOHNSON AND JOHNSON
  Company Number: CA-JNJFOC-20220624421

PATIENT
  Age: 66 Year
  Sex: Male
  Weight: 99 kg

DRUGS (8)
  1. REMICADE [Suspect]
     Active Substance: INFLIXIMAB
     Indication: Interstitial granulomatous dermatitis
     Dosage: THE PATIENT WAS RECEIVED LAST INFUSION ON 05-MAY-2022.?PATIENT RECEIVED LAST INFUSION ON 14-JUL-2022
     Route: 041
     Dates: start: 20190706
  2. REMICADE [Suspect]
     Active Substance: INFLIXIMAB
     Route: 041
  3. REMICADE [Suspect]
     Active Substance: INFLIXIMAB
     Route: 041
  4. REMICADE [Suspect]
     Active Substance: INFLIXIMAB
     Route: 041
  5. REMICADE [Suspect]
     Active Substance: INFLIXIMAB
     Dosage: EXPIRY: 01-/NOV/2026?EXPIRY DATE: 01-JAN-2027
     Route: 041
  6. REMICADE [Suspect]
     Active Substance: INFLIXIMAB
     Route: 041
     Dates: start: 20190706, end: 20241004
  7. XOLAIR [Suspect]
     Active Substance: OMALIZUMAB
     Indication: Product used for unknown indication
     Route: 065
  8. AMOXICILLIN [Concomitant]
     Active Substance: AMOXICILLIN

REACTIONS (16)
  - Rash pruritic [Not Recovered/Not Resolved]
  - Gallbladder disorder [Not Recovered/Not Resolved]
  - Dysphagia [Not Recovered/Not Resolved]
  - Urticaria [Recovering/Resolving]
  - Infusion related reaction [Unknown]
  - Burning sensation [Unknown]
  - Mouth swelling [Unknown]
  - Gingival swelling [Unknown]
  - Lip swelling [Unknown]
  - Temperature intolerance [Unknown]
  - COVID-19 [Recovered/Resolved]
  - Dental care [Unknown]
  - Incorrect drug administration rate [Unknown]
  - Interstitial granulomatous dermatitis [Unknown]
  - Off label use [Unknown]
  - Drug ineffective [Unknown]

NARRATIVE: CASE EVENT DATE: 20190706
